FAERS Safety Report 6171086-1 (Version None)
Quarter: 2009Q2

REPORT INFORMATION
  Report Type: 
  Country: None (occurrence: None)
  Receive Date: 20090429
  Receipt Date: 20090417
  Transmission Date: 20091009
  Serious: Yes (Other)
  Sender: FDA-Public Use
  Company Number: PHEH2009US03848

PATIENT
  Sex: Male

DRUGS (5)
  1. EXELON [Suspect]
     Dosage: 3 MG, QD
     Route: 048
  2. EXELON [Suspect]
     Dosage: 4 MG, QD
     Route: 048
  3. EXELON [Suspect]
     Dosage: 3 MG, QD
     Route: 048
  4. ARICEPT [Suspect]
     Dosage: 10 MG, QD
     Route: 048
     Dates: start: 20090201
  5. NAMENDA [Suspect]
     Dosage: UNK

REACTIONS (3)
  - DIZZINESS [None]
  - DRUG ADMINISTRATION ERROR [None]
  - LOSS OF CONSCIOUSNESS [None]
